FAERS Safety Report 15063682 (Version 1)
Quarter: 2018Q2

REPORT INFORMATION
  Report Type: Spontaneous
  Country: US (occurrence: US)
  Receive Date: 20180625
  Receipt Date: 20180625
  Transmission Date: 20180711
  Serious: No
  Sender: FDA-Public Use
  Company Number: US-AMGEN-USASP2016056144

PATIENT
  Age: 72 Year
  Sex: Female

DRUGS (1)
  1. REPATHA [Suspect]
     Active Substance: EVOLOCUMAB
     Indication: PRODUCT USED FOR UNKNOWN INDICATION
     Dosage: UNK, UNK
     Route: 065
     Dates: start: 20160302

REACTIONS (5)
  - Arthralgia [Unknown]
  - Insomnia [Recovering/Resolving]
  - Rash [Unknown]
  - Myalgia [Unknown]
  - Contusion [Unknown]

NARRATIVE: CASE EVENT DATE: 2016
